FAERS Safety Report 11270961 (Version 1)
Quarter: 2015Q3

REPORT INFORMATION
  Report Type: Spontaneous
  Country: GB (occurrence: GB)
  Receive Date: 20150714
  Receipt Date: 20150714
  Transmission Date: 20151125
  Serious: Yes (Hospitalization)
  Sender: FDA-Public Use
  Company Number: GB-ELI_LILLY_AND_COMPANY-GB201507000680

PATIENT
  Age: 52 Year
  Sex: Female
  Weight: 76.2 kg

DRUGS (6)
  1. BENDROFLUMETHIAZIDE [Concomitant]
     Active Substance: BENDROFLUMETHIAZIDE
     Dosage: UNK UNK, UNKNOWN
  2. LEVOTHYROXINE. [Concomitant]
     Active Substance: LEVOTHYROXINE
     Dosage: UNK UNK, UNKNOWN
  3. DULOXETINE HYDROCHLORIDE. [Suspect]
     Active Substance: DULOXETINE HYDROCHLORIDE
     Indication: DEPRESSION
     Dosage: UNK UNK, UNKNOWN
     Route: 048
     Dates: start: 2014, end: 201506
  4. FELODIPINE. [Concomitant]
     Active Substance: FELODIPINE
     Dosage: UNK UNK, UNKNOWN
  5. CANDESARTAN [Concomitant]
     Active Substance: CANDESARTAN
     Dosage: UNK UNK, UNKNOWN
  6. MEBEVERINE [Concomitant]
     Active Substance: MEBEVERINE
     Dosage: UNK UNK, UNKNOWN

REACTIONS (1)
  - Colitis ulcerative [Not Recovered/Not Resolved]
